FAERS Safety Report 8270401-2 (Version None)
Quarter: 2012Q2

REPORT INFORMATION
  Report Type: 
  Country: None (occurrence: None)
  Receive Date: 20120410
  Receipt Date: 20120405
  Transmission Date: 20120825
  Serious: No
  Sender: FDA-Public Use
  Company Number: US-BAYER-2012-034216

PATIENT
  Age: 83 Year
  Sex: Female
  Weight: 51 kg

DRUGS (2)
  1. ALEVE (CAPLET) [Suspect]
     Indication: PAIN
     Dosage: USED ONLY ONCE
     Route: 048
     Dates: start: 20070101, end: 20070101
  2. LEVOXYL [Concomitant]

REACTIONS (1)
  - ABDOMINAL DISCOMFORT [None]
